FAERS Safety Report 19408946 (Version 1)
Quarter: 2021Q2

REPORT INFORMATION
  Report Type: Spontaneous
  Country: CN (occurrence: CN)
  Receive Date: 20210613
  Receipt Date: 20210613
  Transmission Date: 20210717
  Serious: Yes (Disabling)
  Sender: FDA-Public Use
  Company Number: CN-EMD SERONO-9243523

PATIENT
  Age: 54 Year
  Sex: Male
  Weight: 69 kg

DRUGS (6)
  1. GLUCOPHAGE [Suspect]
     Active Substance: METFORMIN HYDROCHLORIDE
     Indication: TYPE 2 DIABETES MELLITUS
     Route: 048
     Dates: start: 20200810, end: 20201227
  2. METFORMIN HYDROCHLORIDE. [Suspect]
     Active Substance: METFORMIN HYDROCHLORIDE
     Indication: TYPE 2 DIABETES MELLITUS
     Dosage: ENTERIC COATED
     Route: 048
     Dates: start: 20200803, end: 20200808
  3. GLUCOPHAGE [Suspect]
     Active Substance: METFORMIN HYDROCHLORIDE
     Route: 048
     Dates: start: 20210110, end: 20210506
  4. METFORMIN HYDROCHLORIDE. [Suspect]
     Active Substance: METFORMIN HYDROCHLORIDE
     Indication: TYPE 2 DIABETES MELLITUS
     Dosage: SUSTAINED RELEASE
     Route: 048
     Dates: start: 20201228, end: 20201230
  5. METFORMIN HYDROCHLORIDE. [Suspect]
     Active Substance: METFORMIN HYDROCHLORIDE
     Dosage: ENTERIC COATED
     Route: 048
     Dates: start: 20200810, end: 202008
  6. METFORMIN HYDROCHLORIDE. [Suspect]
     Active Substance: METFORMIN HYDROCHLORIDE
     Dosage: SUSTAINED RELEASE
     Route: 048
     Dates: start: 20201230, end: 20210109

REACTIONS (2)
  - Anaemia [Recovering/Resolving]
  - Diarrhoea [Recovering/Resolving]

NARRATIVE: CASE EVENT DATE: 20210111
